FAERS Safety Report 9725561 (Version 3)
Quarter: 2014Q2

REPORT INFORMATION
  Report Type: Report from Study
  Country: NL (occurrence: NL)
  Receive Date: 20131203
  Receipt Date: 20140414
  Transmission Date: 20141212
  Serious: Yes (Death, Hospitalization, Other)
  Sender: FDA-Public Use
  Company Number: PHHY2013NL139697

PATIENT
  Sex: Female

DRUGS (10)
  1. ZOMETA [Suspect]
     Indication: METASTASES TO BONE
     Dosage: 1 DD 4 MG/100 ML, PER 4 WEEKS
     Route: 042
     Dates: start: 201208
  2. ZOMETA [Suspect]
     Dosage: 4 MG/100 ML, PER 4 WEEKS
     Route: 042
     Dates: start: 20120813
  3. ZOMETA [Suspect]
     Dosage: 4 MG/100 ML,PER 4 WEEKS
     Route: 042
     Dates: start: 20131008
  4. ZOMETA [Suspect]
     Dosage: 4 MG/100 ML, PER 4 WEEKS
     Route: 042
     Dates: start: 20131105
  5. ZOMETA [Suspect]
     Dosage: 4 MG/100 ML, PER 4 WEEKS
     Route: 042
     Dates: end: 201311
  6. ESOMEPRAZOLE [Concomitant]
     Dosage: 1 X 20
  7. MOVICOLON [Concomitant]
     Dosage: 1 X 1
  8. EVEROLIMUS [Concomitant]
     Dosage: 5 MG
  9. EXEMESTANE [Concomitant]
     Dosage: 1 X 25 MG
  10. CETIRIZINE [Concomitant]
     Dosage: 1 X 10 MG

REACTIONS (12)
  - Terminal state [Fatal]
  - Depressed level of consciousness [Fatal]
  - Cachexia [Fatal]
  - Cerebral infarction [Fatal]
  - Motor dysfunction [Fatal]
  - Speech disorder [Fatal]
  - Aphasia [Fatal]
  - Headache [Fatal]
  - Disorientation [Fatal]
  - Loss of consciousness [Fatal]
  - Metastases to bone [Unknown]
  - Malignant neoplasm progression [Unknown]
